FAERS Safety Report 9217651 (Version 1)
Quarter: 2013Q2

REPORT INFORMATION
  Report Type: Spontaneous
  Country: FR (occurrence: FR)
  Receive Date: 20130408
  Receipt Date: 20130408
  Transmission Date: 20140414
  Serious: Yes (Life-Threatening, Hospitalization)
  Sender: FDA-Public Use
  Company Number: FR-BRISTOL-MYERS SQUIBB COMPANY-18727693

PATIENT
  Age: 89 Year
  Sex: Female

DRUGS (13)
  1. COUMADINE [Suspect]
     Dosage: FORMULATION-COUMADINE 2 MG?LAST DOSE-31DEC12,RESUMED ON 04JAN13
     Route: 048
  2. KARDEGIC [Suspect]
  3. PYOSTACINE [Suspect]
     Indication: CELLULITIS
     Dosage: 1DF: 2 TAB, 500 MG?LAST DOSE-31DEC12,RESUMED ON 02JAN13
     Route: 048
     Dates: start: 20121229
  4. SERESTA [Concomitant]
     Route: 048
  5. INIPOMP [Concomitant]
     Route: 048
  6. LASILIX RETARD [Concomitant]
     Route: 048
  7. TEMERIT [Concomitant]
  8. SEREVENT [Concomitant]
     Route: 055
  9. LYRICA [Concomitant]
     Route: 048
  10. TRIATEC [Concomitant]
     Route: 048
  11. OXYNORM [Concomitant]
     Indication: PAIN
  12. DAFALGAN [Concomitant]
     Indication: PAIN
  13. LANSOYL [Concomitant]

REACTIONS (6)
  - Gastrointestinal haemorrhage [Recovered/Resolved]
  - Cardiac failure [Recovered/Resolved]
  - Cellulitis [Recovered/Resolved]
  - Erysipelas [Recovered/Resolved]
  - Overdose [Recovered/Resolved]
  - Anaemia [Recovered/Resolved]
